FAERS Safety Report 5255170-2 (Version None)
Quarter: 2007Q1

REPORT INFORMATION
  Report Type: 
  Country: None (occurrence: None)
  Receive Date: 20070305
  Receipt Date: 20070222
  Transmission Date: 20070707
  Serious: Yes (Other)
  Sender: FDA-Public Use
  Company Number: 2007UW03494

PATIENT
  Age: 50 Year
  Sex: Male

DRUGS (3)
  1. SEROQUEL [Suspect]
     Indication: BIPOLAR DISORDER
     Route: 048
     Dates: start: 20050101
  2. VALPROIC ACID [Concomitant]
     Route: 048
     Dates: start: 20050101
  3. COUGH MEDICINE [Concomitant]

REACTIONS (4)
  - ANTICHOLINERGIC SYNDROME [None]
  - CONFUSIONAL STATE [None]
  - ERYTHEMA [None]
  - MYDRIASIS [None]
